FAERS Safety Report 4606217-5 (Version None)
Quarter: 2005Q1

REPORT INFORMATION
  Report Type: 
  Country: None (occurrence: None)
  Receive Date: 20050311
  Receipt Date: 20050211
  Transmission Date: 20050727
  Serious: Yes (Other)
  Sender: FDA-Public Use
  Company Number: PHBS2005ZA02121

PATIENT
  Age: 81 Year
  Sex: Male

DRUGS (8)
  1. ZELNORM [Suspect]
     Indication: IRRITABLE BOWEL SYNDROME
     Dosage: 12 MG/DAY
     Route: 048
     Dates: start: 20050113, end: 20050119
  2. NATRILIX - SLOW RELEASE [Concomitant]
  3. TEN-BLOKA [Concomitant]
  4. RAMIPRIL [Concomitant]
  5. PRAVA [Concomitant]
  6. BEROTEC [Concomitant]
  7. HALCION [Concomitant]
  8. BECLOMETHASONE DIPROPIONATE [Concomitant]

REACTIONS (6)
  - DISORIENTATION [None]
  - DIZZINESS [None]
  - DYSPNOEA [None]
  - FEELING ABNORMAL [None]
  - VERTIGO [None]
  - VOMITING [None]
